FAERS Safety Report 6497339-5 (Version None)
Quarter: 2009Q4

REPORT INFORMATION
  Report Type: 
  Country: None (occurrence: None)
  Receive Date: 20091215
  Receipt Date: 20090928
  Transmission Date: 20100525
  Serious: No
  Sender: FDA-Public Use
  Company Number: A0809608A

PATIENT
  Age: 69 Year
  Sex: Male
  Weight: 82.7 kg

DRUGS (3)
  1. AVODART [Suspect]
     Indication: DRUG USE FOR UNKNOWN INDICATION
     Route: 065
  2. CHANTIX [Suspect]
     Dosage: .5MG PER DAY
     Route: 065
     Dates: start: 20090701
  3. SIMVASTATIN [Suspect]
     Indication: DRUG USE FOR UNKNOWN INDICATION
     Route: 065

REACTIONS (3)
  - DRUG EFFECT DECREASED [None]
  - INSOMNIA [None]
  - MIDDLE INSOMNIA [None]
